FAERS Safety Report 16376689 (Version 1)
Quarter: 2019Q2

REPORT INFORMATION
  Report Type: Spontaneous
  Country: US (occurrence: US)
  Receive Date: 20190531
  Receipt Date: 20190531
  Transmission Date: 20190711
  Serious: No
  Sender: FDA-Public Use
  Company Number: US-BAYER-2019-106198

PATIENT
  Sex: Female

DRUGS (1)
  1. CIPROFLOXACIN. [Suspect]
     Active Substance: CIPROFLOXACIN
     Dosage: UNK
     Dates: start: 20190514

REACTIONS (4)
  - Musculoskeletal stiffness [None]
  - Tendonitis [None]
  - Gait inability [None]
  - Muscle spasticity [None]

NARRATIVE: CASE EVENT DATE: 201905
